FAERS Safety Report 5235137-0 (Version None)
Quarter: 2007Q1

REPORT INFORMATION
  Report Type: 
  Country: None (occurrence: None)
  Receive Date: 20070207
  Receipt Date: 20070130
  Transmission Date: 20070707
  Serious: Yes (Other)
  Sender: FDA-Public Use
  Company Number: 2007SP001282

PATIENT
  Age: 73 Year
  Sex: Female
  Weight: 50 kg

DRUGS (3)
  1. PEG-INTRON [Suspect]
     Indication: HEPATITIS C
     Dosage: 25 MCG;QW;SC
     Route: 058
     Dates: start: 20060511, end: 20070107
  2. REBETOL [Suspect]
     Indication: HEPATITIS C
     Dosage: 200 MG;QD;PO
     Route: 048
     Dates: start: 20060511, end: 20070107
  3. PEGASYS (PREV.) [Concomitant]

REACTIONS (1)
  - CARDIAC FAILURE [None]
